APPROVED DRUG PRODUCT: MYDRIAFAIR
Active Ingredient: TROPICAMIDE
Strength: 0.5%
Dosage Form/Route: SOLUTION/DROPS;OPHTHALMIC
Application: A088274 | Product #001
Applicant: PHARMAFAIR INC
Approved: Sep 16, 1983 | RLD: No | RS: No | Type: DISCN